FAERS Safety Report 14205625 (Version 1)
Quarter: 2017Q4

REPORT INFORMATION
  Report Type: Spontaneous
  Country: US (occurrence: US)
  Receive Date: 20171120
  Receipt Date: 20171120
  Transmission Date: 20180321
  Serious: No
  Sender: FDA-Public Use
  Company Number: US-BAYER-2017-219171

PATIENT
  Sex: Female
  Weight: 53.97 kg

DRUGS (3)
  1. MILK OF MAGNESIA CHERRY [Suspect]
     Active Substance: MAGNESIUM HYDROXIDE
     Indication: GASTROINTESTINAL DISORDER
     Dosage: 4TBS AS NEEDED TABLESPOON
     Route: 048
     Dates: start: 20171111
  2. MIRALAX [Suspect]
     Active Substance: POLYETHYLENE GLYCOL 3350
     Indication: GASTROINTESTINAL DISORDER
     Dosage: UNK
     Route: 048
     Dates: start: 2016, end: 20171108
  3. MILK OF MAGNESIA CHERRY [Suspect]
     Active Substance: MAGNESIUM HYDROXIDE
     Indication: GASTROINTESTINAL DISORDER
     Dosage: 15 ML, QD

REACTIONS (5)
  - Nausea [Recovered/Resolved]
  - Diarrhoea [Recovered/Resolved]
  - Underdose [Unknown]
  - Inappropriate prescribing [Unknown]
  - Drug ineffective [Unknown]

NARRATIVE: CASE EVENT DATE: 2016
